FAERS Safety Report 19945758 (Version 1)
Quarter: 2021Q4

REPORT INFORMATION
  Report Type: Spontaneous
  Country: CN (occurrence: CN)
  Receive Date: 20211012
  Receipt Date: 20211012
  Transmission Date: 20220303
  Serious: Yes (Other)
  Sender: FDA-Public Use
  Company Number: CN-PFIZER INC-202101289032

PATIENT
  Age: 13 Year
  Sex: Male
  Weight: 65.2 kg

DRUGS (3)
  1. SOLU-MEDROL [Suspect]
     Active Substance: METHYLPREDNISOLONE SODIUM SUCCINATE
     Indication: Antiinflammatory therapy
     Dosage: 1000 MG, 1X/DAY
     Route: 041
     Dates: start: 20210904, end: 20210904
  2. SOLU-MEDROL [Suspect]
     Active Substance: METHYLPREDNISOLONE SODIUM SUCCINATE
     Dosage: 750 MG, 1X/DAY
     Route: 041
     Dates: start: 20210905, end: 20210906
  3. SODIUM CHLORIDE [Concomitant]
     Active Substance: SODIUM CHLORIDE
     Indication: Vehicle solution use
     Dosage: 250 ML, 1X/DAY
     Route: 041
     Dates: start: 20210904, end: 20210906

REACTIONS (5)
  - Ocular hypertension [Unknown]
  - Agitation [Unknown]
  - Blood pressure increased [Unknown]
  - Flushing [Unknown]
  - Insomnia [Unknown]

NARRATIVE: CASE EVENT DATE: 20210904
